FAERS Safety Report 22139378 (Version 1)
Quarter: 2023Q1

REPORT INFORMATION
  Report Type: Report from Study
  Country: BR (occurrence: BR)
  Receive Date: 20230327
  Receipt Date: 20230327
  Transmission Date: 20230417
  Serious: Yes (Other)
  Sender: FDA-Public Use
  Company Number: BR-CELLTRION INC.-2022BR013500

PATIENT

DRUGS (3)
  1. INFLIXIMAB [Suspect]
     Active Substance: INFLIXIMAB
     Indication: Psoriasis
     Dosage: 6 AMPOULES OF 100MG EVERY 6 WEEKS
     Route: 042
     Dates: start: 20220819
  2. INFLIXIMAB [Suspect]
     Active Substance: INFLIXIMAB
     Indication: Psoriatic arthropathy
  3. LOSARTAN [Concomitant]
     Active Substance: LOSARTAN
     Indication: Hypertension
     Dosage: 2 PILLS PER DAY (START: 2018)
     Route: 048
     Dates: start: 2018

REACTIONS (7)
  - Uveitis [Unknown]
  - Skin depigmentation [Not Recovered/Not Resolved]
  - Arthralgia [Not Recovered/Not Resolved]
  - Therapy interrupted [Unknown]
  - Off label use [Unknown]
  - Intentional dose omission [Unknown]
  - Overdose [Unknown]
